FAERS Safety Report 23499192 (Version 1)
Quarter: 2024Q1

REPORT INFORMATION
  Report Type: Spontaneous
  Country: CN (occurrence: CN)
  Receive Date: 20240208
  Receipt Date: 20240208
  Transmission Date: 20240409
  Serious: Yes (Hospitalization, Other)
  Sender: FDA-Public Use
  Company Number: CN-NOVOPROD-1169807

PATIENT
  Age: 88 Year
  Sex: Female
  Weight: 30 kg

DRUGS (1)
  1. NOVOLIN N [Suspect]
     Active Substance: INSULIN HUMAN
     Indication: Type 2 diabetes mellitus
     Dosage: 10 IU, QD(EVERY MORNING)
     Dates: start: 2012, end: 20200101

REACTIONS (3)
  - Pulmonary haematoma [Unknown]
  - Hypoglycaemia [Not Recovered/Not Resolved]
  - Hypoglycaemia [Recovering/Resolving]

NARRATIVE: CASE EVENT DATE: 20191231
